FAERS Safety Report 5580926-6 (Version None)
Quarter: 2008Q1

REPORT INFORMATION
  Report Type: 
  Country: None (occurrence: None)
  Receive Date: 20080103
  Receipt Date: 20071224
  Transmission Date: 20080703
  Serious: Yes (Hospitalization, Other)
  Sender: FDA-Public Use
  Company Number: US-ABBOTT-07P-163-0431322-00

PATIENT
  Sex: Female
  Weight: 88.984 kg

DRUGS (12)
  1. HUMIRA [Suspect]
     Indication: RHEUMATOID ARTHRITIS
     Route: 058
     Dates: start: 20050101, end: 20071215
  2. GABAPENTIN [Concomitant]
     Indication: NERVE INJURY
     Route: 048
     Dates: start: 20010101
  3. LORTAB [Concomitant]
     Indication: NECK PAIN
     Route: 048
     Dates: start: 20050101
  4. TIZANIDINE HCL [Concomitant]
     Indication: NERVE INJURY
     Route: 048
     Dates: start: 20050101
  5. SERETIDE [Concomitant]
     Indication: ASTHMA
     Route: 048
     Dates: start: 20040101
  6. TIOTROPIUM BROMIDE [Concomitant]
     Indication: ASTHMA
     Route: 048
     Dates: start: 20060101
  7. MONTELUKAST SODIUM [Concomitant]
     Indication: ASTHMA
     Route: 048
     Dates: start: 20050101
  8. METHOTREXATE [Concomitant]
     Indication: RHEUMATOID ARTHRITIS
     Route: 048
     Dates: start: 20050101
  9. FOLIC ACID [Concomitant]
     Indication: VITAMIN SUPPLEMENTATION
     Route: 048
     Dates: start: 20050101
  10. INEGY [Concomitant]
     Indication: BLOOD CHOLESTEROL INCREASED
     Dosage: 10/40 MG
     Route: 048
     Dates: start: 20050101
  11. LEVOFLOXACIN [Concomitant]
     Indication: THROMBOSIS
     Route: 048
     Dates: start: 20071101, end: 20071101
  12. PAROXETINE HCL [Concomitant]
     Indication: DEPRESSION
     Route: 048
     Dates: start: 19970101

REACTIONS (9)
  - CARDIAC DISORDER [None]
  - CHEST PAIN [None]
  - ERYTHEMA [None]
  - FEELING HOT [None]
  - HAEMOPTYSIS [None]
  - HYPERTENSION [None]
  - OEDEMA PERIPHERAL [None]
  - PERIPHERAL EMBOLISM [None]
  - PULMONARY EMBOLISM [None]
